FAERS Safety Report 10073553 (Version 3)
Quarter: 2014Q2

REPORT INFORMATION
  Report Type: Spontaneous
  Country: US (occurrence: US)
  Receive Date: 20140411
  Receipt Date: 20140520
  Transmission Date: 20141212
  Serious: Yes (Death, Hospitalization, Other)
  Sender: FDA-Public Use
  Company Number: US-B.I. PHARMACEUTICALS,INC./RIDGEFIELD-2014-BI-16144BP

PATIENT
  Age: 66 Year
  Sex: Female
  Weight: 68.95 kg

DRUGS (16)
  1. PRADAXA [Suspect]
     Indication: ATRIAL FIBRILLATION
     Route: 048
     Dates: start: 20130318, end: 20131116
  2. ECASA [Concomitant]
     Dosage: 81 MG
     Route: 048
  3. ASTELIN [Concomitant]
     Route: 065
  4. COREG [Concomitant]
     Dosage: 12.5 MG
     Route: 048
  5. CIPRO [Concomitant]
     Dosage: 1000 MG
     Route: 048
  6. LANOXIN [Concomitant]
     Dosage: 125 MCG
     Route: 048
  7. CARDIZEM CD [Concomitant]
     Dosage: 240 MG
     Route: 048
  8. MULTAQ [Concomitant]
     Dosage: 400 MG
     Route: 048
  9. APRESOLINE [Concomitant]
     Dosage: 50 MG
     Route: 048
  10. ATROVENT [Concomitant]
     Route: 065
  11. CLARITIN [Concomitant]
     Dosage: 10 MG
     Route: 048
  12. COZAAR [Concomitant]
     Dosage: 25 MG
     Route: 048
  13. NASONEX [Concomitant]
     Route: 065
  14. ZOCOR [Concomitant]
     Dosage: 20 MG
     Route: 048
  15. PROVENTIL [Concomitant]
     Route: 065
  16. NORCO [Concomitant]
     Route: 048

REACTIONS (6)
  - Haemorrhage intracranial [Fatal]
  - Coagulopathy [Fatal]
  - Renal failure acute [Fatal]
  - Vaginal haemorrhage [Unknown]
  - Pulmonary oedema [Unknown]
  - Respiratory failure [Unknown]
